FAERS Safety Report 11183359 (Version 1)
Quarter: 2015Q2

REPORT INFORMATION
  Report Type: Spontaneous
  Country: JM (occurrence: JM)
  Receive Date: 20150612
  Receipt Date: 20150612
  Transmission Date: 20150821
  Serious: Yes (Disabling)
  Sender: FDA-Public Use
  Company Number: JM-ACCORD-031398

PATIENT
  Age: 45 Year
  Sex: Female
  Weight: 76.5 kg

DRUGS (1)
  1. CYTAX [Suspect]
     Active Substance: PACLITAXEL
     Indication: BREAST CANCER METASTATIC
     Dosage: BOTTLE DISCARDED
     Route: 042
     Dates: start: 20150130, end: 20150526

REACTIONS (4)
  - Hypoaesthesia [Not Recovered/Not Resolved]
  - Paronychia [Not Recovered/Not Resolved]
  - Muscle spasms [Not Recovered/Not Resolved]
  - Onycholysis [Not Recovered/Not Resolved]

NARRATIVE: CASE EVENT DATE: 20150526
